FAERS Safety Report 4707822-8 (Version None)
Quarter: 2005Q2

REPORT INFORMATION
  Report Type: 
  Country: None (occurrence: None)
  Receive Date: 20050629
  Receipt Date: 20050307
  Transmission Date: 20051028
  Serious: No
  Sender: FDA-Public Use
  Company Number: 05P-163-0292992-00

PATIENT
  Age: 71 Year
  Sex: Male
  Weight: 58.9676 kg

DRUGS (9)
  1. HUMIRA [Suspect]
     Indication: RHEUMATOID ARTHRITIS
     Dosage: 40 MG, 1 IN 1 WK, SUBCUTANEOUS
     Route: 058
     Dates: start: 20041101
  2. TOPROL-XL [Concomitant]
  3. LEXAPRO [Concomitant]
  4. FOLIC ACID [Concomitant]
  5. PANTOPRAZOLE [Concomitant]
  6. CALCITONIN-SALMON [Concomitant]
  7. RISEDRONATE SODIUM [Concomitant]
  8. ASPIRIN [Concomitant]
  9. METHOTREXATE SODIUM [Concomitant]

REACTIONS (1)
  - DRUG INEFFECTIVE [None]
